FAERS Safety Report 4369018-1 (Version None)
Quarter: 2004Q2

REPORT INFORMATION
  Report Type: 
  Country: None (occurrence: None)
  Receive Date: 20040525
  Receipt Date: 20040512
  Transmission Date: 20050107
  Serious: Yes (Life-Threatening, Hospitalization)
  Sender: FDA-Public Use
  Company Number: GB-JNJFOC-20040502174

PATIENT
  Age: 72 Year
  Sex: Female

DRUGS (12)
  1. REMICADE [Suspect]
     Indication: RHEUMATOID ARTHRITIS
     Dosage: 180 MG, INTRAVENOUS
     Route: 042
     Dates: start: 20010530, end: 20020625
  2. REMICADE [Suspect]
     Indication: RHEUMATOID ARTHRITIS
     Dosage: 180 MG, INTRAVENOUS
     Route: 042
     Dates: start: 20021001, end: 20030501
  3. METHOTREXATE [Concomitant]
  4. PREDNISOLONE [Concomitant]
  5. FOLIC ACID [Concomitant]
  6. ENALAPRIL MALEATE [Concomitant]
  7. ALENDRONATE (ALENDRONATE SODIUM) [Concomitant]
  8. CALCICHEW (CALCIUIM CARBONATE) [Concomitant]
  9. AMITRIPTYLINE HCL [Concomitant]
  10. ROFECOXIB [Concomitant]
  11. ASCORBIC ACID [Concomitant]
  12. METOCLOPRAMIDE [Concomitant]

REACTIONS (1)
  - NON-HODGKIN'S LYMPHOMA [None]
